FAERS Safety Report 10041120 (Version 1)
Quarter: 2014Q1

REPORT INFORMATION
  Report Type: Spontaneous
  Country: US (occurrence: US)
  Receive Date: 20140327
  Receipt Date: 20140327
  Transmission Date: 20141002
  Serious: Yes (Other)
  Sender: FDA-Public Use
  Company Number: US-SA-2014SA037480

PATIENT
  Age: 29 Year
  Sex: Male
  Weight: 104.5 kg

DRUGS (14)
  1. FABRAZYME [Suspect]
     Indication: FABRY^S DISEASE
     Route: 042
  2. ASPIRIN [Concomitant]
  3. MECLIZINE [Concomitant]
  4. HYDROCHLOROTHIAZIDE/LOSARTAN [Concomitant]
  5. ZYRTEC [Concomitant]
  6. EPIPEN [Concomitant]
  7. WATER [Concomitant]
  8. SODIUM CHLORIDE [Concomitant]
  9. NORMAL SALINE [Concomitant]
  10. ACETAMINOPHEN [Concomitant]
  11. ALBUTEROL [Concomitant]
  12. LYRICA [Concomitant]
  13. PERCOCET [Concomitant]
  14. TRAMADOL [Concomitant]

REACTIONS (1)
  - Tooth abscess [Unknown]
